FAERS Safety Report 24252720 (Version 1)
Quarter: 2024Q3

REPORT INFORMATION
  Report Type: Spontaneous
  Country: PL (occurrence: PL)
  Receive Date: 20240827
  Receipt Date: 20240827
  Transmission Date: 20241017
  Serious: Yes (Other)
  Sender: STRIDES
  Company Number: PL-STRIDES ARCOLAB LIMITED-2024SP010589

PATIENT
  Age: 38 Year
  Sex: Female

DRUGS (5)
  1. CLARITHROMYCIN [Suspect]
     Active Substance: CLARITHROMYCIN
     Indication: Cervical incompetence
     Dosage: UNK
     Route: 065
  2. METRONIDAZOLE [Suspect]
     Active Substance: METRONIDAZOLE
     Indication: Cervical incompetence
     Dosage: UNK
     Route: 065
  3. CEFTRIAXONE [Suspect]
     Active Substance: CEFTRIAXONE\CEFTRIAXONE SODIUM
     Indication: Cervical incompetence
     Dosage: UNK
     Route: 065
  4. INDOMETHACIN [Suspect]
     Active Substance: INDOMETHACIN
     Indication: Cervical incompetence
     Dosage: UNK
     Route: 065
  5. PROGESTERONE [Suspect]
     Active Substance: PROGESTERONE
     Indication: Cervical incompetence
     Dosage: UNK
     Route: 067

REACTIONS (3)
  - Premature delivery [Unknown]
  - Maternal exposure during pregnancy [Unknown]
  - Off label use [Unknown]
